FAERS Safety Report 15477521 (Version 8)
Quarter: 2019Q1

REPORT INFORMATION
  Report Type: Report from Study
  Country: None (occurrence: US)
  Receive Date: 20181009
  Receipt Date: 20190220
  Transmission Date: 20190417
  Serious: Yes (Hospitalization, Other)
  Sender: FDA-Public Use
  Company Number: US-ABBVIE-18S-163-2511837-00

PATIENT
  Age: 76 Year
  Sex: Male
  Weight: 103.97 kg

DRUGS (22)
  1. DOMPERIDONE [Concomitant]
     Active Substance: DOMPERIDONE
     Indication: GASTROINTESTINAL MOTILITY DISORDER
  2. SENEKOT [Concomitant]
     Indication: CONSTIPATION PROPHYLAXIS
  3. SOTALOL. [Concomitant]
     Active Substance: SOTALOL
     Indication: PRODUCT USED FOR UNKNOWN INDICATION
     Route: 048
     Dates: start: 20171204
  4. SENNA-EXTRA [Concomitant]
     Indication: LAXATIVE SUPPORTIVE CARE
     Route: 048
     Dates: start: 20171204
  5. TUTERPINE [Concomitant]
     Indication: PRODUCT USED FOR UNKNOWN INDICATION
     Route: 048
     Dates: start: 20171204
  6. MIRALAX [Concomitant]
     Active Substance: POLYETHYLENE GLYCOL 3350
     Indication: CONSTIPATION
     Route: 048
     Dates: start: 20171204
  7. TIMOLOL MALEATE. [Concomitant]
     Active Substance: TIMOLOL MALEATE
     Indication: GLAUCOMA
     Dosage: EYE DROPS
     Route: 047
     Dates: start: 20171204
  8. SENEKOT [Concomitant]
     Indication: CONSTIPATION
  9. VITAMIN D3 [Concomitant]
     Active Substance: CHOLECALCIFEROL
     Indication: SUPPLEMENTATION THERAPY
     Route: 048
     Dates: start: 20171204
  10. ALBUTEROL. [Concomitant]
     Active Substance: ALBUTEROL
     Indication: PRODUCT USED FOR UNKNOWN INDICATION
     Dosage: 1 VIAL
     Dates: start: 20180228
  11. NASAL SPRAY [Concomitant]
     Active Substance: UNSPECIFIED INGREDIENT
     Indication: PRODUCT USED FOR UNKNOWN INDICATION
     Route: 045
     Dates: start: 20180907
  12. COLACE [Concomitant]
     Active Substance: DOCUSATE SODIUM
     Indication: CONSTIPATION PROPHYLAXIS
     Route: 048
     Dates: start: 20171204
  13. HEPARIN [Concomitant]
     Active Substance: HEPARIN SODIUM
     Indication: THROMBOSIS PROPHYLAXIS
  14. DUOPA [Suspect]
     Active Substance: CARBIDOPA\LEVODOPA
     Route: 050
     Dates: start: 20171208, end: 20171220
  15. ASPIRIN. [Concomitant]
     Active Substance: ASPIRIN
     Indication: PROPHYLAXIS
     Route: 048
     Dates: start: 20171204
  16. DUOPA [Suspect]
     Active Substance: CARBIDOPA\LEVODOPA
     Indication: PARKINSON^S DISEASE
     Route: 050
     Dates: start: 20151105
  17. VITAMIN B COMPLEX [Concomitant]
     Active Substance: CYANOCOBALAMIN\DEXPANTHENOL\NIACINAMIDE\PYRIDOXINE HYDROCHLORIDE\RIBOFLAVIN 5^-PHOSPHATE SODIUM\THIAMINE HYDROCHLORIDE\VITAMIN B COMPLEX
     Indication: VITAMIN SUPPLEMENTATION
     Route: 048
     Dates: start: 20171204
  18. PROBIOTIC [Concomitant]
     Active Substance: PROBIOTICS NOS
     Indication: PROBIOTIC THERAPY
     Route: 048
     Dates: start: 20171204
  19. VITAMIN C [Concomitant]
     Active Substance: ASCORBIC ACID
     Indication: SUPPLEMENTATION THERAPY
  20. DUOPA [Suspect]
     Active Substance: CARBIDOPA\LEVODOPA
     Route: 050
     Dates: start: 20171220, end: 201810
  21. CARBIDOPA/LEVODOPA [Concomitant]
     Active Substance: CARBIDOPA\LEVODOPA
     Indication: PARKINSON^S DISEASE
     Route: 048
     Dates: start: 20171204
  22. DOMPERIDONE [Concomitant]
     Active Substance: DOMPERIDONE
     Indication: CONSTIPATION
     Route: 048
     Dates: start: 20171204

REACTIONS (42)
  - Weight decreased [Recovering/Resolving]
  - Joint swelling [Recovering/Resolving]
  - Abnormal behaviour [Unknown]
  - Pneumonia aspiration [Recovering/Resolving]
  - Dementia [Not Recovered/Not Resolved]
  - Ankle fracture [Recovering/Resolving]
  - Cough [Recovering/Resolving]
  - Hallucination [Recovered/Resolved]
  - Bacterial test positive [Recovering/Resolving]
  - Hypoaesthesia oral [Recovered/Resolved]
  - Ligament sprain [Unknown]
  - Gait disturbance [Not Recovered/Not Resolved]
  - Weight decreased [Not Recovered/Not Resolved]
  - Hypophagia [Recovering/Resolving]
  - Lethargy [Recovering/Resolving]
  - Facial nerve disorder [Recovering/Resolving]
  - Fall [Recovered/Resolved]
  - Lower limb fracture [Recovering/Resolving]
  - Pneumonia aspiration [Recovering/Resolving]
  - Confusional state [Recovering/Resolving]
  - Dysphagia [Recovering/Resolving]
  - Oral candidiasis [Not Recovered/Not Resolved]
  - Urinary tract infection [Recovered/Resolved]
  - Dysstasia [Not Recovered/Not Resolved]
  - Atrial fibrillation [Not Recovered/Not Resolved]
  - Aggression [Recovered/Resolved]
  - Intentional medical device removal by patient [Recovered/Resolved]
  - Peripheral swelling [Unknown]
  - Insomnia [Unknown]
  - Asthenia [Unknown]
  - Musculoskeletal stiffness [Not Recovered/Not Resolved]
  - Dysarthria [Recovering/Resolving]
  - Pharyngeal hypoaesthesia [Recovered/Resolved]
  - Dysphonia [Recovering/Resolving]
  - Aggression [Recovering/Resolving]
  - Cough [Recovering/Resolving]
  - Eye disorder [Recovered/Resolved]
  - Pneumonia [Recovering/Resolving]
  - Fall [Recovered/Resolved]
  - Decubitus ulcer [Not Recovered/Not Resolved]
  - Fall [Unknown]
  - Urinary tract infection [Recovered/Resolved]

NARRATIVE: CASE EVENT DATE: 2018
